FAERS Safety Report 15131621 (Version 1)
Quarter: 2018Q3

REPORT INFORMATION
  Report Type: Spontaneous
  Country: JP (occurrence: JP)
  Receive Date: 20180711
  Receipt Date: 20180711
  Transmission Date: 20181010
  Serious: Yes (Other)
  Sender: FDA-Public Use
  Company Number: JP-PFIZER INC-2018279491

PATIENT
  Age: 3 Month
  Sex: Female
  Weight: 1.63 kg

DRUGS (3)
  1. PREDNISOLONE. [Concomitant]
     Active Substance: PREDNISOLONE
     Indication: LYMPHANGIOMA
     Dosage: UNK
     Route: 065
  2. VINCRISTINE SULFATE. [Concomitant]
     Active Substance: VINCRISTINE SULFATE
     Indication: LYMPHANGIOMA
     Dosage: UNK
     Route: 065
  3. RAPALIMUS [Suspect]
     Active Substance: SIROLIMUS
     Indication: LYMPHANGIOMA
     Dosage: UNK
     Route: 048

REACTIONS (4)
  - Haemorrhagic diathesis [Unknown]
  - Tumour haemorrhage [Unknown]
  - Coagulopathy [Unknown]
  - Off label use [Unknown]
